FAERS Safety Report 7352393-3 (Version None)
Quarter: 2011Q1

REPORT INFORMATION
  Report Type: 
  Country: None (occurrence: None)
  Receive Date: 20110315
  Receipt Date: 20110228
  Transmission Date: 20110831
  Serious: Yes (Hospitalization, Other)
  Sender: FDA-Public Use
  Company Number: US-BAYER-201038346NA

PATIENT
  Sex: Female
  Weight: 81.633 kg

DRUGS (10)
  1. DUONEB [Concomitant]
     Indication: WHEEZING
     Dosage: UNK
     Dates: start: 20080430
  2. EFFEXOR XR [Concomitant]
     Indication: ANXIETY
     Dosage: 225 MG, CONT
     Route: 048
     Dates: start: 20101018
  3. YAZ [Suspect]
     Indication: PRODUCT USED FOR UNKNOWN INDICATION
     Route: 048
     Dates: start: 20060601, end: 20080615
  4. SIMVASTATIN [Concomitant]
     Dosage: 40 MG, PRN
     Route: 048
     Dates: start: 20101018
  5. EFFEXOR [Concomitant]
  6. PRILOSEC [Concomitant]
     Dosage: UNK
     Dates: start: 20071121
  7. BENADRYL [Concomitant]
     Indication: PRURITUS
  8. MIDRIN [Concomitant]
     Indication: TENSION HEADACHE
     Dosage: UNK UNK, Q4HR
     Route: 048
  9. PHENTERMINE [Concomitant]
     Indication: WEIGHT DECREASED
     Dosage: 37.5 MG, CONT
     Route: 048
     Dates: start: 20061026
  10. EFFEXOR XR [Concomitant]
     Indication: DEPRESSION
     Dosage: 150 MG, CONT
     Dates: start: 20070727

REACTIONS (4)
  - ABDOMINAL PAIN UPPER [None]
  - PAIN [None]
  - CHOLELITHIASIS [None]
  - CHOLECYSTITIS [None]
